FAERS Safety Report 10134558 (Version 2)
Quarter: 2014Q3

REPORT INFORMATION
  Report Type: Spontaneous
  Country: US (occurrence: US)
  Receive Date: 20140428
  Receipt Date: 20140731
  Transmission Date: 20150326
  Serious: Yes (Other)
  Sender: FDA-Public Use
  Company Number: US-GILEAD-2014-0100820

PATIENT
  Sex: Female

DRUGS (1)
  1. LETAIRIS [Suspect]
     Active Substance: AMBRISENTAN
     Indication: PULMONARY ARTERIAL HYPERTENSION
     Dosage: 5 MG, UNK
     Route: 065
     Dates: start: 20091217

REACTIONS (15)
  - Cerebrovascular accident [Unknown]
  - Abasia [Unknown]
  - Weight decreased [Unknown]
  - Unevaluable event [Unknown]
  - Tobacco user [Unknown]
  - Escherichia infection [Unknown]
  - Activities of daily living impaired [Unknown]
  - Cardiac disorder [Unknown]
  - Cardiac failure congestive [Unknown]
  - Gastroenteritis Escherichia coli [Unknown]
  - Terminal state [Unknown]
  - Brain natriuretic peptide abnormal [Unknown]
  - Blindness [Unknown]
  - Pulmonary arterial hypertension [Unknown]
  - Nodule [Unknown]
